FAERS Safety Report 10185393 (Version 1)
Quarter: 2014Q2

REPORT INFORMATION
  Report Type: Spontaneous
  Country: JP (occurrence: JP)
  Receive Date: 20140521
  Receipt Date: 20140521
  Transmission Date: 20141212
  Serious: Yes (Hospitalization)
  Sender: FDA-Public Use
  Company Number: PHHY2014JP058509

PATIENT
  Age: 50 Year
  Sex: Female

DRUGS (2)
  1. GLIVEC [Suspect]
     Indication: CHRONIC MYELOID LEUKAEMIA
     Dosage: 400 MG, QD
     Route: 048
  2. GLIVEC [Suspect]
     Dosage: 300 MG, QD
     Route: 048
     Dates: start: 20101228

REACTIONS (3)
  - Gastric cancer [Recovered/Resolved]
  - Second primary malignancy [Recovered/Resolved]
  - Oedema [Recovered/Resolved]
